FAERS Safety Report 21666942 (Version 2)
Quarter: 2023Q1

REPORT INFORMATION
  Report Type: Report from Study
  Country: CO (occurrence: CO)
  Receive Date: 20221201
  Receipt Date: 20230104
  Transmission Date: 20230417
  Serious: Yes (Other)
  Sender: FDA-Public Use
  Company Number: CO-UCBSA-2022065314

PATIENT
  Age: 76 Year
  Sex: Female

DRUGS (4)
  1. ROTIGOTINE [Suspect]
     Active Substance: ROTIGOTINE
     Indication: Parkinson^s disease
     Dosage: 6 MILLIGRAM, ONCE DAILY (QD)
     Route: 062
     Dates: start: 20210410, end: 20220804
  2. ROTIGOTINE [Suspect]
     Active Substance: ROTIGOTINE
     Dosage: 3 MILLIGRAM, EV 2 DAYS (QOD)
     Route: 062
     Dates: start: 20220805, end: 20221025
  3. CARBIDOPA\LEVODOPA [Concomitant]
     Active Substance: CARBIDOPA\LEVODOPA
     Indication: Parkinson^s disease
  4. AMANTADINE [Concomitant]
     Active Substance: AMANTADINE
     Indication: Parkinson^s disease

REACTIONS (8)
  - Paralysis [Recovered/Resolved]
  - Loss of control of legs [Recovered/Resolved]
  - Gait disturbance [Recovered/Resolved]
  - Dizziness [Recovered/Resolved]
  - Headache [Recovered/Resolved]
  - Limb discomfort [Recovered/Resolved]
  - Muscle rigidity [Recovered/Resolved]
  - Off label use [Unknown]

NARRATIVE: CASE EVENT DATE: 20220805
